FAERS Safety Report 9809884 (Version 2)
Quarter: 2015Q1

REPORT INFORMATION
  Report Type: Spontaneous
  Country: US (occurrence: US)
  Receive Date: 20140110
  Receipt Date: 20150218
  Transmission Date: 20150721
  Serious: Yes (Disabling, Other)
  Sender: FDA-Public Use
  Company Number: US-SANOFI-AVENTIS-2013SA067362

PATIENT
  Age: 74 Year

DRUGS (4)
  1. PLAVIX [Suspect]
     Active Substance: CLOPIDOGREL BISULFATE
     Indication: CEREBROVASCULAR ACCIDENT
     Route: 048
     Dates: start: 20100101, end: 20120622
  2. PLAVIX [Suspect]
     Active Substance: CLOPIDOGREL BISULFATE
     Indication: TRANSIENT ISCHAEMIC ATTACK
     Route: 048
     Dates: start: 20100101, end: 20120622
  3. ASPIRIN. [Concomitant]
     Active Substance: ASPIRIN
  4. PLAVIX [Suspect]
     Active Substance: CLOPIDOGREL BISULFATE
     Indication: ISCHAEMIC HEART DISEASE PROPHYLAXIS
     Route: 048
     Dates: start: 20100101, end: 20120622

REACTIONS (9)
  - Haemorrhage [Recovered/Resolved]
  - Gastrointestinal haemorrhage [Recovered/Resolved]
  - Hemiplegia [Unknown]
  - Speech disorder [Unknown]
  - Cerebral haemorrhage [Recovered/Resolved]
  - Ulcer haemorrhage [Recovered/Resolved]
  - Motor dysfunction [Unknown]
  - Transient ischaemic attack [Unknown]
  - Abasia [Unknown]

NARRATIVE: CASE EVENT DATE: 20120622
